FAERS Safety Report 9719117 (Version 1)
Quarter: 2013Q4

REPORT INFORMATION
  Report Type: Spontaneous
  Country: CA (occurrence: CA)
  Receive Date: 20131127
  Receipt Date: 20131127
  Transmission Date: 20140711
  Serious: Yes (Other)
  Sender: FDA-Public Use
  Company Number: CHPA2013CA017583

PATIENT
  Age: 69 Year
  Sex: Female

DRUGS (4)
  1. BUCKLEY^S COMPLETE EXTRA STRENGTH PLUS MUCUS RELIEF [Suspect]
     Indication: INCREASED UPPER AIRWAY SECRETION
     Dosage: SWIG, BID
     Route: 048
     Dates: start: 20131112, end: 20131116
  2. BUCKLEY^S UNKNOWN [Suspect]
     Route: 048
  3. CLARITHROMYCIN [Suspect]
     Dosage: 500 MG, UNK
     Dates: start: 20131103
  4. ASPIRIN [Concomitant]
     Dosage: UNK, QD

REACTIONS (7)
  - Bronchitis chronic [Unknown]
  - Oral fungal infection [Recovering/Resolving]
  - Tongue disorder [Recovering/Resolving]
  - Glossodynia [Recovering/Resolving]
  - Swollen tongue [Recovering/Resolving]
  - Dyspnoea [Unknown]
  - Wrong technique in drug usage process [Unknown]
